FAERS Safety Report 6457555-5 (Version None)
Quarter: 2009Q4

REPORT INFORMATION
  Report Type: 
  Country: None (occurrence: None)
  Receive Date: 20091125
  Receipt Date: 20091116
  Transmission Date: 20100525
  Serious: Yes (Hospitalization)
  Sender: FDA-Public Use
  Company Number: PHHY2009DE28519

PATIENT
  Sex: Male
  Weight: 60 kg

DRUGS (4)
  1. ZOMETA [Suspect]
     Indication: METASTASES TO BONE
     Dosage: 4 MG, QMO
     Route: 042
     Dates: start: 20070201, end: 20090701
  2. LEUPRORELIN [Suspect]
     Indication: PROSTATE CANCER
     Dosage: DEPOTINJECTION EVERY 3 MONTHS
     Route: 058
  3. DURAGESIC-100 [Suspect]
     Indication: TUMOUR PAIN
     Dosage: UNK
     Route: 062
     Dates: start: 20090501
  4. ASPIRIN [Concomitant]
     Indication: PERIPHERAL ARTERIAL OCCLUSIVE DISEASE

REACTIONS (2)
  - CUTANEOUS LUPUS ERYTHEMATOSUS [None]
  - PORPHYRIA NON-ACUTE [None]
